FAERS Safety Report 7169939-0 (Version None)
Quarter: 2010Q4

REPORT INFORMATION
  Report Type: 
  Country: None (occurrence: None)
  Receive Date: 20101217
  Receipt Date: 20101123
  Transmission Date: 20110411
  Serious: Yes (Death, Other)
  Sender: FDA-Public Use
  Company Number: TH-GENZYME-FLUD-1000541

PATIENT
  Age: 63 Year
  Sex: Male

DRUGS (8)
  1. FLUDARA [Suspect]
     Indication: B-CELL LYMPHOMA
     Dosage: 30 MG/M2, QDX3
     Route: 042
  2. FLUDARA [Suspect]
     Dosage: 30 MG/M2, QDX3
     Route: 042
  3. CYCLOPHOSPHAMIDE [Suspect]
     Indication: B-CELL LYMPHOMA
     Dosage: UNK
     Route: 042
  4. CYCLOPHOSPHAMIDE [Suspect]
     Dosage: UNK
     Route: 042
  5. RITUXIMAB [Suspect]
     Indication: B-CELL LYMPHOMA
     Dosage: 500 MG, QD
     Route: 065
  6. RITUXIMAB [Suspect]
     Dosage: 500 MG, QD
     Route: 065
  7. RITUXIMAB [Suspect]
     Dosage: UNK
     Route: 065
  8. RITUXIMAB [Suspect]
     Dosage: UNK
     Route: 065

REACTIONS (3)
  - INFECTION [None]
  - MYELODYSPLASTIC SYNDROME [None]
  - NON-HODGKIN'S LYMPHOMA RECURRENT [None]
